FAERS Safety Report 9041443 (Version 1)
Quarter: 2013Q1

REPORT INFORMATION
  Report Type: Spontaneous
  Country: US (occurrence: None)
  Receive Date: 20130128
  Receipt Date: 20130128
  Transmission Date: 20140127
  Serious: Yes (Hospitalization)
  Sender: FDA-Public Use
  Company Number: None

PATIENT
  Age: 66 Year
  Sex: Male
  Weight: 97.07 kg

DRUGS (10)
  1. PRADAXA - DABIGATRAN- 150 MG BOEHRINGER INGELHEIM [Suspect]
     Indication: ATRIAL FIBRILLATION
     Dosage: 150 MG  TWICE DAILY  PO?1 DOSE?11/02/2012  --  11/02/2012
     Route: 048
     Dates: start: 20121102, end: 20121102
  2. TOPROL [Concomitant]
  3. PERCOCET [Concomitant]
  4. LIPITOR [Concomitant]
  5. LISINOPRIL [Concomitant]
  6. FERROUS SULFATE [Concomitant]
  7. ASPIRIN [Concomitant]
  8. COLACE [Concomitant]
  9. PRILOSEC [Concomitant]
  10. PRADAXA [Concomitant]

REACTIONS (7)
  - Pain [None]
  - Hyperhidrosis [None]
  - Terminal insomnia [None]
  - Blood pressure systolic increased [None]
  - Arthralgia [None]
  - Palpitations [None]
  - Heart rate increased [None]
